FAERS Safety Report 21767739 (Version 3)
Quarter: 2023Q1

REPORT INFORMATION
  Report Type: Spontaneous
  Country: US (occurrence: US)
  Receive Date: 20221222
  Receipt Date: 20230217
  Transmission Date: 20230418
  Serious: Yes (Hospitalization)
  Sender: FDA-Public Use
  Company Number: US-SAREPTA THERAPEUTICS INC.-SRP2022-002869

PATIENT
  Age: 21 Year
  Sex: Male

DRUGS (1)
  1. AMONDYS 45 [Suspect]
     Active Substance: CASIMERSEN
     Indication: Product used for unknown indication
     Dosage: 2400 MILLIGRAM, WEEKLY
     Route: 042
     Dates: start: 20210809

REACTIONS (2)
  - Respiratory arrest [Unknown]
  - Infection [Unknown]

NARRATIVE: CASE EVENT DATE: 20221201
